FAERS Safety Report 16740606 (Version 10)
Quarter: 2021Q1

REPORT INFORMATION
  Report Type: Report from Study
  Country: US (occurrence: US)
  Receive Date: 20190826
  Receipt Date: 20210313
  Transmission Date: 20210419
  Serious: Yes (Death, Life-Threatening, Hospitalization, Other)
  Sender: FDA-Public Use
  Company Number: PHEH2019US035239

PATIENT
  Age: 12 Month
  Sex: Male
  Weight: 8.9 kg

DRUGS (4)
  1. KYMRIAH [Suspect]
     Active Substance: TISAGENLECLEUCEL
     Indication: ACUTE LYMPHOCYTIC LEUKAEMIA
  2. KYMRIAH [Suspect]
     Active Substance: TISAGENLECLEUCEL
     Indication: B-CELL TYPE ACUTE LEUKAEMIA
     Dosage: 2.2E6 CAR?POSITIVE VIABLE T CELLS/KG BODY WEIGHT
     Route: 042
     Dates: start: 20190701
  3. FLUDARABINE [Concomitant]
     Active Substance: FLUDARABINE PHOSPHATE
     Indication: CHEMOTHERAPY
     Dosage: UNK
     Route: 065
  4. CYCLOPHOSPHAMIDE. [Concomitant]
     Active Substance: CYCLOPHOSPHAMIDE
     Indication: CHEMOTHERAPY
     Dosage: UNK
     Route: 065

REACTIONS (19)
  - Venoocclusive disease [Unknown]
  - Platelet count decreased [Unknown]
  - Enterobacter infection [Unknown]
  - Leukocytosis [Unknown]
  - Lymphocyte count decreased [Unknown]
  - Haemoglobin decreased [Unknown]
  - Cytokine release syndrome [Recovered/Resolved]
  - Hypogammaglobulinaemia [Recovered/Resolved]
  - Neutrophil count decreased [Unknown]
  - Basophilia [Unknown]
  - Neutrophilia [Unknown]
  - Monocytosis [Unknown]
  - Bacterial infection [Fatal]
  - Organ failure [Unknown]
  - Acute lymphocytic leukaemia recurrent [Not Recovered/Not Resolved]
  - White blood cell count decreased [Unknown]
  - Graft versus host disease [Unknown]
  - Pyrexia [Recovered/Resolved]
  - Treatment failure [Unknown]

NARRATIVE: CASE EVENT DATE: 20190709
